FAERS Safety Report 19148432 (Version 1)
Quarter: 2021Q2

REPORT INFORMATION
  Report Type: Spontaneous
  Country: US (occurrence: US)
  Receive Date: 20210416
  Receipt Date: 20210416
  Transmission Date: 20210717
  Serious: Yes (Other)
  Sender: FDA-Public Use
  Company Number: US-ACIC FINE CHEMICALS INC-2109408

PATIENT
  Sex: Male

DRUGS (1)
  1. TRANEXAMIC ACID. [Suspect]
     Active Substance: TRANEXAMIC ACID
     Indication: PLASTIC SURGERY
     Route: 058

REACTIONS (2)
  - Seizure [Unknown]
  - Off label use [Unknown]
